FAERS Safety Report 4643153-2 (Version None)
Quarter: 2005Q2

REPORT INFORMATION
  Report Type: 
  Country: None (occurrence: None)
  Receive Date: 20050422
  Receipt Date: 20050218
  Transmission Date: 20051028
  Serious: Yes (Other)
  Sender: FDA-Public Use
  Company Number: 2005033892

PATIENT
  Age: 38 Year
  Sex: Male
  Weight: 86.1834 kg

DRUGS (1)
  1. CELEBREX [Suspect]
     Indication: BACK INJURY
     Dosage: (200 MG INTERVAL:  EVERYDAY), ORAL
     Route: 048
     Dates: start: 20040701, end: 20050101

REACTIONS (4)
  - CHEST DISCOMFORT [None]
  - HEADACHE [None]
  - HYPERTENSION [None]
  - STRESS [None]
